FAERS Safety Report 10043657 (Version 1)
Quarter: 2014Q1

REPORT INFORMATION
  Report Type: Spontaneous
  Country: US (occurrence: US)
  Receive Date: 20140328
  Receipt Date: 20140328
  Transmission Date: 20141002
  Serious: Yes (Other)
  Sender: FDA-Public Use
  Company Number: US-JNJFOC-20140314331

PATIENT
  Age: 89 Year
  Sex: Female
  Weight: 56.7 kg

DRUGS (8)
  1. XARELTO [Suspect]
     Indication: THROMBOSIS
     Route: 048
     Dates: start: 20140312
  2. XARELTO [Suspect]
     Indication: THROMBOSIS
     Route: 048
     Dates: start: 201403, end: 20140311
  3. ZOCOR [Concomitant]
     Indication: BLOOD CHOLESTEROL ABNORMAL
     Dosage: BEGAN 5-10 YEARS AGO
     Route: 048
     Dates: start: 2008
  4. PRILOSEC [Concomitant]
     Indication: GASTROOESOPHAGEAL REFLUX DISEASE
     Dosage: BEGAN MANY YEARS AGO.??TAKEN IN THE MORNING.
     Route: 048
  5. VITAMIN D [Concomitant]
     Indication: VITAMIN SUPPLEMENTATION
     Dosage: STARTED IN 2008 OR 2009
     Route: 048
  6. VITAMIN D [Concomitant]
     Indication: DEMENTIA ALZHEIMER^S TYPE
     Dosage: STARTED IN 2008 OR 2009
     Route: 048
  7. ARICEPT [Concomitant]
     Indication: DEMENTIA ALZHEIMER^S TYPE
     Route: 048
     Dates: start: 2008
  8. NAMENDA [Concomitant]
     Indication: DEMENTIA ALZHEIMER^S TYPE
     Route: 048
     Dates: start: 2008

REACTIONS (3)
  - Haemoglobin decreased [Unknown]
  - Drug prescribing error [Unknown]
  - Wrong technique in drug usage process [Unknown]
